FAERS Safety Report 16351034 (Version 1)
Quarter: 2019Q2

REPORT INFORMATION
  Report Type: Spontaneous
  Country: US (occurrence: US)
  Receive Date: 20190524
  Receipt Date: 20190524
  Transmission Date: 20190711
  Serious: Yes (Other)
  Sender: FDA-Public Use
  Company Number: US-ROCHE-2324502

PATIENT
  Sex: Male
  Weight: 48.58 kg

DRUGS (4)
  1. PULMOZYME [Suspect]
     Active Substance: DORNASE ALFA
     Indication: LUNG DISORDER
  2. PULMOZYME [Suspect]
     Active Substance: DORNASE ALFA
     Indication: CYSTIC FIBROSIS
     Dosage: PULMOZYME SOLUTION VIA NEBULIZER
     Route: 050
     Dates: start: 20170321
  3. OMEPRAZOLE. [Concomitant]
     Active Substance: OMEPRAZOLE
     Dosage: ONGOING:UNKNOWN
     Route: 048
     Dates: start: 20170315
  4. ALBUTEROL SULFATE. [Concomitant]
     Active Substance: ALBUTEROL SULFATE
     Dosage: ONGOING:UNKNOWN
     Route: 065
     Dates: start: 20170315

REACTIONS (1)
  - Viral infection [Unknown]
